FAERS Safety Report 6795845-7 (Version None)
Quarter: 2010Q2

REPORT INFORMATION
  Report Type: 
  Country: None (occurrence: None)
  Receive Date: 20100625
  Receipt Date: 20100618
  Transmission Date: 20101027
  Serious: Yes (Death)
  Sender: FDA-Public Use
  Company Number: A0866091A

PATIENT
  Age: 25 Year
  Sex: Female

DRUGS (6)
  1. IMITREX [Suspect]
     Indication: MIGRAINE
     Dosage: 250MG UNKNOWN
     Route: 048
  2. VICODIN [Suspect]
     Indication: DRUG USE FOR UNKNOWN INDICATION
     Route: 065
  3. ANTIDEPRESSANT [Suspect]
     Indication: DRUG USE FOR UNKNOWN INDICATION
     Route: 065
  4. ANTIDEPRESSANT [Suspect]
     Route: 065
  5. NARCOTICS [Suspect]
     Indication: DRUG USE FOR UNKNOWN INDICATION
     Route: 065
  6. PAIN MEDICATION [Concomitant]
     Indication: MIGRAINE

REACTIONS (2)
  - BRAIN OEDEMA [None]
  - MULTIPLE DRUG OVERDOSE ACCIDENTAL [None]
